FAERS Safety Report 4439173-3 (Version None)
Quarter: 2004Q3

REPORT INFORMATION
  Report Type: 
  Country: None (occurrence: None)
  Receive Date: 20040831
  Receipt Date: 20040817
  Transmission Date: 20050211
  Serious: Yes (Death, Hospitalization)
  Sender: FDA-Public Use
  Company Number: 04-00476

PATIENT
  Age: 11 Year
  Sex: Male

DRUGS (1)
  1. CARBAMAZEPINE [Suspect]
     Indication: COMPLEX PARTIAL SEIZURES

REACTIONS (23)
  - ANOXIC ENCEPHALOPATHY [None]
  - ATHEROSCLEROSIS [None]
  - BLOOD CHOLESTEROL INCREASED [None]
  - BRONCHOPNEUMONIA [None]
  - CARDIAC ARREST [None]
  - CARDIOMEGALY [None]
  - CEREBRAL ISCHAEMIA [None]
  - COMA [None]
  - DISSEMINATED INTRAVASCULAR COAGULATION [None]
  - DYSLIPIDAEMIA [None]
  - EPILEPSY [None]
  - HEPATIC NECROSIS [None]
  - HYPERPYREXIA [None]
  - HYPOTENSION [None]
  - MYOCARDIAL INFARCTION [None]
  - NEUROLOGICAL SYMPTOM [None]
  - PNEUMONIA ASPIRATION [None]
  - RENAL FAILURE ACUTE [None]
  - RENAL TUBULAR NECROSIS [None]
  - RHABDOMYOLYSIS [None]
  - SEPSIS [None]
  - STAPHYLOCOCCAL INFECTION [None]
  - STATUS EPILEPTICUS [None]
